FAERS Safety Report 4471420-4 (Version None)
Quarter: 2004Q4

REPORT INFORMATION
  Report Type: 
  Country: None (occurrence: None)
  Receive Date: 20041007
  Receipt Date: 20040922
  Transmission Date: 20050328
  Serious: No
  Sender: FDA-Public Use
  Company Number: 2004AL000275

PATIENT
  Age: 43 Year
  Sex: Female

DRUGS (4)
  1. TRAMADOL HCL [Suspect]
     Indication: RHEUMATOID ARTHRITIS
     Dosage: 400MG DAILY
  2. METHOTREXATE [Concomitant]
  3. PREDNISONE [Concomitant]
  4. FOLATE [Concomitant]

REACTIONS (9)
  - ATAXIA [None]
  - BLOOD PRESSURE SYSTOLIC INCREASED [None]
  - DRUG WITHDRAWAL SYNDROME [None]
  - DYSARTHRIA [None]
  - DYSKINESIA [None]
  - HALLUCINATION, VISUAL [None]
  - HEART RATE INCREASED [None]
  - MENTAL STATUS CHANGES [None]
  - RESTLESSNESS [None]
